FAERS Safety Report 4361645-0 (Version None)
Quarter: 2004Q2

REPORT INFORMATION
  Report Type: 
  Country: None (occurrence: None)
  Receive Date: 20040521
  Receipt Date: 20040416
  Transmission Date: 20050107
  Serious: No
  Sender: FDA-Public Use
  Company Number: US-GLAXOSMITHKLINE-A0507444A

PATIENT
  Age: 12 Year
  Sex: Female

DRUGS (4)
  1. WELLBUTRIN XL [Suspect]
     Indication: ILL-DEFINED DISORDER
     Dosage: 150MG PER DAY
     Route: 048
     Dates: start: 20040401
  2. TRAZODONE HCL [Concomitant]
  3. FLONASE [Concomitant]
  4. CLARINEX [Concomitant]

REACTIONS (1)
  - RASH [None]
